FAERS Safety Report 15150282 (Version 1)
Quarter: 2018Q3

REPORT INFORMATION
  Report Type: Spontaneous
  Country: US (occurrence: US)
  Receive Date: 20180619
  Receipt Date: 20180619
  Transmission Date: 20181010
  Serious: Yes (Death)
  Sender: FDA-Public Use
  Company Number: None

PATIENT
  Age: 74 Year
  Sex: Male

DRUGS (12)
  1. ELIGARD [Suspect]
     Active Substance: LEUPROLIDE ACETATE
     Indication: PROSTATE CANCER
     Dosage: ?          OTHER FREQUENCY:EVERY 3 MONTHS;?
     Route: 058
     Dates: start: 20170222
  2. FLOMAX [Concomitant]
     Active Substance: TAMSULOSIN HYDROCHLORIDE
  3. NOVASC [Concomitant]
  4. TAMSULOSIN [Concomitant]
     Active Substance: TAMSULOSIN
  5. MULTI?VITE [Concomitant]
  6. VITAMIN D3 [Concomitant]
     Active Substance: CHOLECALCIFEROL
  7. METOPROLOL. [Concomitant]
     Active Substance: METOPROLOL
  8. FERROUS SUL [Concomitant]
  9. ALBUTEROL. [Concomitant]
     Active Substance: ALBUTEROL
  10. MELOXICAM. [Concomitant]
     Active Substance: MELOXICAM
  11. NEURONTIN [Concomitant]
     Active Substance: GABAPENTIN
  12. OXYCODONE AND ACETAMINOPHEN [Concomitant]
     Active Substance: ACETAMINOPHEN\OXYCODONE HYDROCHLORIDE

REACTIONS (1)
  - Death [None]

NARRATIVE: CASE EVENT DATE: 20180618
